FAERS Safety Report 9093115 (Version 1)
Quarter: 2013Q1

REPORT INFORMATION
  Report Type: Spontaneous
  Country: BR (occurrence: BR)
  Receive Date: 20130201
  Receipt Date: 20130201
  Transmission Date: 20140127
  Serious: Yes (Other)
  Sender: FDA-Public Use
  Company Number: PHHY2013BR009549

PATIENT
  Sex: Female
  Weight: 53 kg

DRUGS (4)
  1. ACLASTA [Suspect]
     Indication: OSTEOPOROSIS
     Dosage: 5 MG, UNK
     Route: 042
  2. ATENOLOL [Concomitant]
  3. BENICAR [Concomitant]
  4. FRISIUM [Concomitant]

REACTIONS (2)
  - Fall [Recovering/Resolving]
  - Asthenia [Recovering/Resolving]
